FAERS Safety Report 10212480 (Version 1)
Quarter: 2014Q2

REPORT INFORMATION
  Report Type: Spontaneous
  Country: US (occurrence: US)
  Receive Date: 20140602
  Receipt Date: 20140602
  Transmission Date: 20141212
  Serious: No
  Sender: FDA-Public Use
  Company Number: US-AMGEN-USASP2014037403

PATIENT
  Age: 33 Year
  Sex: Female

DRUGS (1)
  1. ENBREL [Suspect]
     Indication: RHEUMATOID ARTHRITIS
     Dosage: UNK MG, QWK
     Route: 065
     Dates: start: 20000501, end: 20140428

REACTIONS (5)
  - Sinus disorder [Unknown]
  - Dysphonia [Unknown]
  - Pyrexia [Unknown]
  - Bronchitis [Unknown]
  - Nasopharyngitis [Unknown]
